FAERS Safety Report 7398839-6 (Version None)
Quarter: 2011Q2

REPORT INFORMATION
  Report Type: 
  Country: None (occurrence: None)
  Receive Date: 20110404
  Receipt Date: 20110404
  Transmission Date: 20111010
  Serious: No
  Sender: FDA-Public Use
  Company Number: None

PATIENT
  Age: 41 Year
  Sex: Male

DRUGS (1)
  1. RITUXAN [Suspect]
     Dosage: 50CC-150CC PER HOUR CONTINUOUS IV DRIP
     Route: 041
     Dates: start: 20101214, end: 20101215

REACTIONS (3)
  - VOMITING [None]
  - CHILLS [None]
  - BLOOD PRESSURE DECREASED [None]
